FAERS Safety Report 10253101 (Version 1)
Quarter: 2014Q2

REPORT INFORMATION
  Report Type: Spontaneous
  Country: US (occurrence: US)
  Receive Date: 20140623
  Receipt Date: 20140623
  Transmission Date: 20141212
  Serious: No
  Sender: FDA-Public Use
  Company Number: US-ZOGENIX, INC.-2011ZX000399

PATIENT
  Age: 71 Year
  Sex: Female
  Weight: 58.11 kg

DRUGS (6)
  1. SUMAVEL DOSEPRO [Suspect]
     Indication: MIGRAINE
     Dates: start: 20110801, end: 20110801
  2. SUMAVEL DOSEPRO [Suspect]
     Dates: start: 20110506
  3. ELAVIL                             /00002202/ [Concomitant]
     Indication: MIGRAINE
     Route: 048
  4. ZOLPIDEM [Concomitant]
     Indication: SLEEP DISORDER
     Route: 048
  5. PREMARIN [Concomitant]
     Indication: HORMONE THERAPY
     Route: 048
  6. ANACIN                             /00141001/ [Concomitant]
     Indication: HEADACHE
     Route: 048

REACTIONS (4)
  - Injection site haemorrhage [Recovered/Resolved]
  - Drug ineffective [Recovered/Resolved]
  - Injection site pain [Recovered/Resolved]
  - Incorrect dose administered by device [Recovered/Resolved]
